FAERS Safety Report 13080993 (Version 1)
Quarter: 2017Q1

REPORT INFORMATION
  Report Type: Spontaneous
  Country: IT (occurrence: IT)
  Receive Date: 20170103
  Receipt Date: 20170103
  Transmission Date: 20170428
  Serious: Yes (Other)
  Sender: FDA-Public Use
  Company Number: IT-JNJFOC-20161227119

PATIENT
  Age: 65 Year
  Sex: Male

DRUGS (3)
  1. NEOTIGASON [Suspect]
     Active Substance: ACITRETIN
     Indication: PSORIATIC ARTHROPATHY
     Route: 065
  2. REMICADE [Suspect]
     Active Substance: INFLIXIMAB
     Indication: PSORIATIC ARTHROPATHY
     Route: 042
  3. METHOTREXATE. [Suspect]
     Active Substance: METHOTREXATE
     Indication: PSORIATIC ARTHROPATHY
     Route: 065

REACTIONS (1)
  - Lung carcinoma cell type unspecified stage 0 [Unknown]

NARRATIVE: CASE EVENT DATE: 20150703
